FAERS Safety Report 8973260 (Version 1)
Quarter: 2012Q4

REPORT INFORMATION
  Report Type: 
  Country: US (occurrence: US)
  Receive Date: 20121218
  Receipt Date: 20121218
  Transmission Date: 20130627
  Serious: Yes (Hospitalization)
  Sender: FDA-Public Use
  Company Number: US-BRISTOL-MYERS SQUIBB COMPANY-16936874

PATIENT
  Age: 55 Year
  Sex: Female
  Weight: 90.7 kg

DRUGS (1)
  1. ABILIFY TABS [Suspect]
     Dosage: Restarted on Jun11:5mg
2 mg in Mor and Eve changed to 4 mg in Mor.
     Dates: start: 2009

REACTIONS (2)
  - Suicidal ideation [Unknown]
  - Weight increased [Unknown]
